FAERS Safety Report 11055137 (Version 1)
Quarter: 2015Q2

REPORT INFORMATION
  Report Type: Spontaneous
  Country: US (occurrence: None)
  Receive Date: 20150421
  Receipt Date: 20150421
  Transmission Date: 20150821
  Serious: Yes (Hospitalization)
  Sender: FDA-Public Use
  Company Number: None

PATIENT
  Age: 52 Year
  Sex: Male
  Weight: 95.5 kg

DRUGS (2)
  1. NALTREXONE [Suspect]
     Active Substance: NALTREXONE
     Indication: ALCOHOL ABUSE
     Route: 048
     Dates: start: 20131028, end: 20150410
  2. OLANZAPINE. [Suspect]
     Active Substance: OLANZAPINE
     Indication: AFFECTIVE DISORDER
     Route: 048
     Dates: start: 20140416, end: 20150413

REACTIONS (3)
  - Hypotension [None]
  - Rhabdomyolysis [None]
  - Tachycardia [None]

NARRATIVE: CASE EVENT DATE: 20150409
